FAERS Safety Report 4300507-1 (Version None)
Quarter: 2004Q1

REPORT INFORMATION
  Report Type: 
  Country: None (occurrence: None)
  Receive Date: 20040218
  Receipt Date: 20040130
  Transmission Date: 20041129
  Serious: Yes (Other)
  Sender: FDA-Public Use
  Company Number: USA040158048

PATIENT
  Age: 16 Year
  Sex: Male
  Weight: 70 kg

DRUGS (2)
  1. HUMATROPE [Suspect]
     Indication: BLOOD GROWTH HORMONE ABNORMAL
     Dates: start: 19870101
  2. HUMATROPE [Suspect]
     Indication: HORMONE LEVEL ABNORMAL
     Dates: start: 19870101

REACTIONS (2)
  - NEOPLASM [None]
  - PHARMACEUTICAL PRODUCT COMPLAINT [None]
